FAERS Safety Report 9160701 (Version 2)
Quarter: 2013Q2

REPORT INFORMATION
  Report Type: Spontaneous
  Country: PR (occurrence: PR)
  Receive Date: 20130313
  Receipt Date: 20130418
  Transmission Date: 20140414
  Serious: Yes (Hospitalization)
  Sender: FDA-Public Use
  Company Number: PR-ABBOTT-13P-131-1040466-00

PATIENT
  Age: 55 Year
  Sex: Female
  Weight: 62.65 kg

DRUGS (8)
  1. HUMIRA PEN [Suspect]
     Indication: PRODUCT USED FOR UNKNOWN INDICATION
     Route: 058
  2. DICLOFENAC POTASSIUM [Concomitant]
     Indication: PAIN
     Route: 048
  3. DICLOFENAC POTASSIUM [Concomitant]
     Indication: RHEUMATOID ARTHRITIS
  4. ADVIL [Concomitant]
     Indication: PRODUCT USED FOR UNKNOWN INDICATION
     Route: 048
  5. GABAPENTIN [Concomitant]
     Indication: PRODUCT USED FOR UNKNOWN INDICATION
     Dosage: WEEKLY
     Route: 048
  6. PATCH [Concomitant]
     Indication: BACK PAIN
     Route: 061
  7. NORFLEX [Concomitant]
     Indication: BACK PAIN
     Route: 048
  8. UNKNOWN ANTIINFLAMMATORIES [Concomitant]
     Indication: MUSCLE SPASMS
     Route: 048

REACTIONS (2)
  - Gastric ulcer [Recovered/Resolved]
  - Diarrhoea [Recovered/Resolved]
